FAERS Safety Report 8419275-7 (Version None)
Quarter: 2012Q2

REPORT INFORMATION
  Report Type: 
  Country: None (occurrence: None)
  Receive Date: 20120607
  Receipt Date: 20120604
  Transmission Date: 20120825
  Serious: Yes (Other)
  Sender: FDA-Public Use
  Company Number: US-JNJFOC-20120308046

PATIENT
  Sex: Male
  Weight: 62.14 kg

DRUGS (14)
  1. VITAMIN [Concomitant]
     Indication: ROUTINE HEALTH MAINTENANCE
     Route: 065
  2. CALCIUM [Concomitant]
     Indication: BONE DISORDER
     Route: 065
  3. LISTERINE TOOTH DEFENSE [Suspect]
     Indication: DENTAL CARIES
     Dosage: FOR A WEEK
     Route: 048
     Dates: start: 20111201
  4. VITAMIN-MINERAL COMPOUND TAB [Concomitant]
     Indication: EYE DISORDER
     Route: 065
  5. ATROVENT [Concomitant]
     Indication: RHINITIS
     Route: 065
     Dates: start: 20080501
  6. AVAPRO [Concomitant]
     Indication: HYPERTENSION
     Route: 065
     Dates: start: 20101101
  7. LISTERINE TOOTH DEFENSE [Suspect]
     Indication: DENTAL FLUORIDE THERAPY
     Dosage: FOR A WEEK
     Route: 048
     Dates: start: 20111201
  8. AMLODIPINE BESYLATE [Concomitant]
     Indication: HYPERTENSION
     Route: 065
     Dates: start: 20101101
  9. ASPIRIN [Concomitant]
     Indication: ANTICOAGULANT THERAPY
     Route: 065
  10. IBUPROFEN (ADVIL) [Concomitant]
     Route: 065
  11. LISTERINE TOOTH DEFENSE [Suspect]
     Dosage: SMALL AMOUNT, LESS THAN RECOMMENDED, 1-2 TIMES A DAY. FOR A WEEK
     Route: 048
     Dates: start: 20111001
  12. VITAMIN D [Concomitant]
     Indication: VITAMIN D DEFICIENCY
     Route: 065
  13. FINASTERIDE [Concomitant]
     Indication: BENIGN PROSTATIC HYPERPLASIA
     Route: 065
     Dates: start: 20101101
  14. LISTERINE TOOTH DEFENSE [Suspect]
     Dosage: SMALL AMOUNT, LESS THAN RECOMMENDED, 1-2 TIMES A DAY. FOR A WEEK
     Route: 048
     Dates: start: 20111001

REACTIONS (4)
  - ORAL MUCOSAL BLISTERING [None]
  - LIP BLISTER [None]
  - LIP SWELLING [None]
  - MOUTH ULCERATION [None]
